FAERS Safety Report 7563857-1 (Version None)
Quarter: 2011Q2

REPORT INFORMATION
  Report Type: 
  Country: None (occurrence: None)
  Receive Date: 20110621
  Receipt Date: 20110621
  Transmission Date: 20111010
  Serious: Yes (Other)
  Sender: FDA-Public Use
  Company Number: None

PATIENT
  Sex: Female
  Weight: 63.5 kg

DRUGS (1)
  1. LEVORA ETHINYL ESTRADIOL 0.03MG/ LEVONORGESTROL 0.15MG WATSON PHARMACE [Suspect]
     Indication: CONTRACEPTION
     Dosage: 1 TABLET DAILY ORAL
     Route: 048
     Dates: start: 20090309, end: 20110502

REACTIONS (2)
  - COLITIS ISCHAEMIC [None]
  - HYPERCOAGULATION [None]
